FAERS Safety Report 24624776 (Version 1)
Quarter: 2024Q4

REPORT INFORMATION
  Report Type: Spontaneous
  Country: US (occurrence: US)
  Receive Date: 20241115
  Receipt Date: 20241115
  Transmission Date: 20250115
  Serious: No
  Sender: BAXTER
  Company Number: US-BAXTER-2024BAX027698

PATIENT

DRUGS (2)
  1. NOREPINEPHRINE BITARTRATE [Suspect]
     Active Substance: NOREPINEPHRINE BITARTRATE
     Dosage: UNK, ROUTE OF ADMINISTRATION IS INTRAVASCULAR
     Route: 050
  2. VASOPRESSIN [Suspect]
     Active Substance: VASOPRESSIN
     Dosage: UNK, ROUTE OF ADMINISTRATION IS INTRAVASCULAR
     Route: 050

REACTIONS (1)
  - Hypotension [Unknown]
